FAERS Safety Report 5868753-3 (Version None)
Quarter: 2008Q3

REPORT INFORMATION
  Report Type: 
  Country: None (occurrence: None)
  Receive Date: 20080828
  Receipt Date: 20080814
  Transmission Date: 20090109
  Serious: Yes (Life-Threatening)
  Sender: FDA-Public Use
  Company Number: WAES 0808USA02691

PATIENT
  Age: 43 Year
  Sex: Male
  Weight: 79.8331 kg

DRUGS (4)
  1. TAB MK-0431 UNK [Suspect]
     Indication: TYPE 2 DIABETES MELLITUS
     Dosage: 100 MG/DAILY/PO
     Route: 048
     Dates: start: 20080320
  2. ACETAMINOPHEN [Concomitant]
  3. HYDROCODONE BITARTRATE [Concomitant]
  4. INSULIN GLARGINE [Concomitant]

REACTIONS (2)
  - HYPOGLYCAEMIA [None]
  - LOSS OF CONSCIOUSNESS [None]
